FAERS Safety Report 5065882-1 (Version None)
Quarter: 2006Q3

REPORT INFORMATION
  Report Type: 
  Country: None (occurrence: None)
  Receive Date: 20060731
  Receipt Date: 20060313
  Transmission Date: 20061208
  Serious: Yes (Hospitalization)
  Sender: FDA-Public Use
  Company Number: BR-BRISTOL-MYERS SQUIBB COMPANY-13314554

PATIENT
  Age: 57 Year
  Sex: Female

DRUGS (4)
  1. ORENCIA [Suspect]
     Indication: RHEUMATOID ARTHRITIS
     Dates: start: 20051206
  2. METHOTREXATE [Suspect]
     Route: 048
     Dates: start: 20030630
  3. NAPROXEN [Concomitant]
     Dates: start: 20040810
  4. PREDNISONE [Concomitant]
     Dates: start: 20031029

REACTIONS (1)
  - VERTIGO [None]
